FAERS Safety Report 8823314 (Version 4)
Quarter: 2012Q4

REPORT INFORMATION
  Report Type: Report from Study
  Country: DE (occurrence: DE)
  Receive Date: 20121003
  Receipt Date: 20121101
  Transmission Date: 20130627
  Serious: Yes (Hospitalization)
  Sender: FDA-Public Use
  Company Number: DE-ROCHE-1134852

PATIENT
  Age: 63 Year
  Sex: Female
  Weight: 77 kg

DRUGS (2)
  1. CAPECITABINE [Suspect]
     Indication: RECTAL CANCER
     Dosage: LAST DOSE PRIOR TO SAE:22/SEP/2010
     Route: 048
     Dates: start: 20100816
  2. OXALIPLATIN [Suspect]
     Indication: RECTAL CANCER
     Dosage: last dose prior to sae:13/sep/2010
     Route: 042
     Dates: start: 20100816

REACTIONS (2)
  - C-reactive protein increased [Recovered/Resolved]
  - Pelvic abscess [Recovered/Resolved]
